FAERS Safety Report 8121688-8 (Version None)
Quarter: 2012Q1

REPORT INFORMATION
  Report Type: 
  Country: None (occurrence: None)
  Receive Date: 20120207
  Receipt Date: 20120207
  Transmission Date: 20120608
  Serious: No
  Sender: FDA-Public Use
  Company Number: None

PATIENT
  Age: 82 Year
  Sex: Female
  Weight: 81.6475 kg

DRUGS (2)
  1. BONIVA [Suspect]
     Indication: BONE DENSITY ABNORMAL
     Dosage: 1 MONTHLY
     Dates: start: 20111208
  2. BONIVA [Suspect]
     Indication: BONE DENSITY ABNORMAL
     Dosage: 1 MONTHLY
     Dates: start: 20111108

REACTIONS (17)
  - DYSPEPSIA [None]
  - MUSCLE TIGHTNESS [None]
  - BONE PAIN [None]
  - BACK INJURY [None]
  - DYSSTASIA [None]
  - POST-TRAUMATIC PAIN [None]
  - GAIT DISTURBANCE [None]
  - ARTHRALGIA [None]
  - DIARRHOEA [None]
  - MYALGIA [None]
  - HEAD INJURY [None]
  - FALL [None]
  - JOINT INJURY [None]
  - LIMB INJURY [None]
  - PAIN IN EXTREMITY [None]
  - ERUCTATION [None]
  - VOMITING [None]
